FAERS Safety Report 8760987 (Version 1)
Quarter: 2012Q4

REPORT INFORMATION
  Report Type: Report from Study
  Country: FR (occurrence: FR)
  Receive Date: 20120830
  Receipt Date: 20120830
  Transmission Date: 20130627
  Serious: Yes (Hospitalization)
  Sender: FDA-Public Use
  Company Number: FR-VERTEX PHARMACEUTICAL INC.-000000000000000014

PATIENT

DRUGS (8)
  1. VX-950 [Suspect]
     Indication: HEPATITIS C
     Dosage: 750 mg, tid
     Route: 048
     Dates: start: 20111214
  2. VX-950 [Suspect]
     Dosage: UNK
  3. VX-950 [Suspect]
     Dosage: UNK
  4. COPEGUS [Suspect]
     Indication: HEPATITIS C
     Dosage: 500 mg, bid
     Route: 065
     Dates: start: 20111116
  5. PEGASYS [Suspect]
     Indication: HEPATITIS C
     Dosage: 180 ?g, weekly
     Route: 065
     Dates: start: 20111116
  6. EFAVIRENZ [Suspect]
     Indication: HIV INFECTION
     Dosage: 600 mg, qd
     Route: 065
     Dates: start: 20110408
  7. NORVIR [Suspect]
     Indication: HIV INFECTION
     Dosage: 100 mg, qd
     Route: 065
     Dates: start: 20060115
  8. REYATAZ [Suspect]
     Indication: HIV INFECTION
     Dosage: 400 mg, qd
     Route: 065
     Dates: start: 20110408

REACTIONS (3)
  - Anxiety [Recovered/Resolved]
  - Decreased appetite [Recovered/Resolved]
  - Emotional disorder [Recovered/Resolved]
